FAERS Safety Report 8411160-X (Version None)
Quarter: 2012Q2

REPORT INFORMATION
  Report Type: 
  Country: None (occurrence: None)
  Receive Date: 20120605
  Receipt Date: 20120501
  Transmission Date: 20120825
  Serious: Yes (Other)
  Sender: FDA-Public Use
  Company Number: US-AMGEN-USASP2012027428

PATIENT
  Age: 56 Year
  Sex: Female

DRUGS (2)
  1. ENBREL [Suspect]
     Indication: RHEUMATOID ARTHRITIS
     Dosage: 50 MG, QWK
     Dates: start: 20110501
  2. DIURETICS [Concomitant]

REACTIONS (9)
  - ERYTHEMA [None]
  - PRURITUS [None]
  - INFLUENZA [None]
  - ORTHOPNOEA [None]
  - SKIN EXFOLIATION [None]
  - RASH [None]
  - CARDIAC FAILURE CONGESTIVE [None]
  - FLUID RETENTION [None]
  - DYSPNOEA [None]
